FAERS Safety Report 10601335 (Version 1)
Quarter: 2014Q4

REPORT INFORMATION
  Report Type: Spontaneous
  Country: US (occurrence: None)
  Receive Date: 20141121
  Receipt Date: 20141121
  Transmission Date: 20150529
  Serious: No
  Sender: FDA-Public Use
  Company Number: None

PATIENT
  Age: 1 Year
  Sex: Male
  Weight: 2.27 kg

DRUGS (1)
  1. LIDOCAINE INJ 100MG/5ML IMS/AMPHASTAR [Suspect]
     Active Substance: LIDOCAINE
     Dosage: 100 MG INTRAVENOUS
     Route: 042
     Dates: start: 20141119, end: 20141120

REACTIONS (3)
  - Product packaging issue [None]
  - Syringe issue [None]
  - Product quality issue [None]

NARRATIVE: CASE EVENT DATE: 20141119
